FAERS Safety Report 20514667 (Version 1)
Quarter: 2022Q1

REPORT INFORMATION
  Report Type: Spontaneous
  Country: US (occurrence: US)
  Receive Date: 20220224
  Receipt Date: 20220224
  Transmission Date: 20220423
  Serious: No
  Sender: FDA-Public Use
  Company Number: US-BRISTOL-MYERS SQUIBB COMPANY-BMS-2022-024194

PATIENT
  Age: 78 Year
  Sex: Female
  Weight: 53.061 kg

DRUGS (8)
  1. ELIQUIS [Suspect]
     Active Substance: APIXABAN
     Indication: Deep vein thrombosis
     Dosage: 5 MILLIGRAM, BID
     Route: 048
     Dates: start: 20220120
  2. NAPHAZOLINE HYDROCHLORIDE [Concomitant]
     Active Substance: NAPHAZOLINE HYDROCHLORIDE
     Indication: Glaucoma
     Dosage: UNK
     Route: 065
  3. DIAMOX SEQUELS [Concomitant]
     Active Substance: ACETAZOLAMIDE
     Indication: Product used for unknown indication
     Dosage: UNK
     Route: 048
  4. OMEPRAZOLE [Concomitant]
     Active Substance: OMEPRAZOLE
     Indication: Product used for unknown indication
     Dosage: UNK
     Route: 065
  5. ANTIHISTAMINES NOS [Concomitant]
     Active Substance: ANTIHISTAMINES NOS
     Indication: Hypersensitivity
     Dosage: UNK
     Route: 065
  6. ZINC [Concomitant]
     Active Substance: ZINC
     Indication: Product used for unknown indication
     Dosage: EVERYDAY
     Route: 065
  7. ZANTHIN [Concomitant]
     Indication: Glaucoma
     Dosage: UNK
     Route: 065
  8. VITAMIN B [Concomitant]
     Active Substance: VITAMIN B
     Indication: Glaucoma

REACTIONS (3)
  - Product dose omission issue [Unknown]
  - Head injury [Unknown]
  - Headache [Recovering/Resolving]

NARRATIVE: CASE EVENT DATE: 20220212
